FAERS Safety Report 11246399 (Version 1)
Quarter: 2015Q3

REPORT INFORMATION
  Report Type: Spontaneous
  Country: US (occurrence: None)
  Receive Date: 20150706
  Receipt Date: 20150706
  Transmission Date: 20151125
  Serious: Yes (Other)
  Sender: FDA-Public Use
  Company Number: None

PATIENT
  Age: 30 Year
  Sex: Female

DRUGS (1)
  1. TECFIDERA [Suspect]
     Active Substance: DIMETHYL FUMARATE
     Indication: MULTIPLE SCLEROSIS
     Dosage: 1 TAB
     Route: 048
     Dates: start: 20150626, end: 20150701

REACTIONS (5)
  - Feeling abnormal [None]
  - Stress [None]
  - Muscular weakness [None]
  - Progressive multifocal leukoencephalopathy [None]
  - Pain [None]

NARRATIVE: CASE EVENT DATE: 20150701
